FAERS Safety Report 4935100-0 (Version None)
Quarter: 2006Q1

REPORT INFORMATION
  Report Type: 
  Country: None (occurrence: None)
  Receive Date: 20060306
  Receipt Date: 20060306
  Transmission Date: 20060701
  Serious: Yes (Hospitalization)
  Sender: FDA-Public Use
  Company Number: None

PATIENT
  Age: 47 Year
  Sex: Female

DRUGS (2)
  1. MORPHINE [Suspect]
     Indication: PROCEDURAL PAIN
     Dates: start: 20060101, end: 20060201
  2. PHENYTOIN [Suspect]
     Indication: CONVULSION
     Dosage: 300 MG PO QHS
     Route: 048
     Dates: start: 20060101, end: 20060201

REACTIONS (6)
  - BLOOD CREATININE INCREASED [None]
  - DRUG ERUPTION [None]
  - EOSINOPHILIA [None]
  - EOSINOPHILS URINE PRESENT [None]
  - RASH MACULO-PAPULAR [None]
  - RASH MORBILLIFORM [None]
